FAERS Safety Report 8586992-8 (Version None)
Quarter: 2012Q3

REPORT INFORMATION
  Report Type: 
  Country: None (occurrence: None)
  Receive Date: 20120810
  Receipt Date: 20120731
  Transmission Date: 20120928
  Serious: Yes (Hospitalization)
  Sender: FDA-Public Use
  Company Number: JP-AMGEN-JPNCT2012050249

PATIENT
  Age: 79 Year
  Sex: Male
  Weight: 52 kg

DRUGS (19)
  1. TAMSULOSIN HCL [Concomitant]
     Dosage: UNCERTAINTY
     Route: 048
  2. ADALAT CC [Concomitant]
     Dosage: UNCERTAINTY
     Route: 048
  3. URALYT [Concomitant]
     Dosage: UNCERTAINTY
     Route: 048
  4. VOGLIBOSE [Concomitant]
     Dosage: UNCERTAINTY
     Route: 048
  5. GASMOTIN [Concomitant]
     Dosage: UNCERTAINTY
     Route: 048
  6. ASPIRIN [Concomitant]
     Dosage: UNCERTAINTY
     Route: 048
  7. DARBEPOETIN ALFA - KHK [Suspect]
     Indication: NEPHROGENIC ANAEMIA
     Dosage: 60 MUG, UNK
     Route: 058
     Dates: start: 20110702
  8. ATELEC [Concomitant]
     Dosage: UNCERTAINTY
     Route: 048
  9. LASIX [Concomitant]
     Dosage: UNCERTAINTY
     Route: 048
  10. NORVASC [Concomitant]
     Dosage: UNCERTAINTY
     Route: 048
  11. INDAPAMIDE [Concomitant]
     Dosage: UNCERTAINTY
     Route: 048
  12. KREMEZIN [Concomitant]
     Dosage: UNCERTAINTY
     Route: 048
  13. OMEPRAZOLE [Concomitant]
     Dosage: UNCERTAINTY
     Route: 048
  14. DOXAZOSIN MESYLATE [Concomitant]
     Dosage: UNCERTAINTY
     Route: 048
  15. ISOSORBIDE DINITRATE [Concomitant]
     Dosage: UNCERTAINTY
     Route: 062
  16. ISOSORBIDE MONONITRATE [Concomitant]
     Dosage: UNCERTAINTY
     Route: 048
  17. EPADEL-S [Concomitant]
     Dosage: UNCERTAINTY
     Route: 048
  18. VITAMIN B12 [Concomitant]
     Dosage: UNCERTAINTY
     Route: 048
  19. TORSEMIDE [Concomitant]
     Dosage: UNCERTAINTY
     Route: 048

REACTIONS (2)
  - BLOOD PRESSURE INCREASED [None]
  - CARDIAC FAILURE CONGESTIVE [None]
